FAERS Safety Report 15057769 (Version 1)
Quarter: 2018Q2

REPORT INFORMATION
  Report Type: Spontaneous
  Country: FR (occurrence: FR)
  Receive Date: 20180625
  Receipt Date: 20180625
  Transmission Date: 20180711
  Serious: Yes (Hospitalization)
  Sender: FDA-Public Use
  Company Number: FR-AUROBINDO-AUR-APL-2018-000502

PATIENT
  Age: 43 Year
  Sex: Female
  Weight: 109 kg

DRUGS (15)
  1. IBUPROFEN. [Suspect]
     Active Substance: IBUPROFEN
     Indication: POSTOPERATIVE ANALGESIA
     Dosage: ()
     Route: 048
     Dates: start: 20170613, end: 20170614
  2. BETADINE [Concomitant]
     Active Substance: POVIDONE-IODINE
  3. SEVOFLURANE BAXTER [Concomitant]
     Active Substance: SEVOFLURANE
     Dosage: ()
  4. SUFENTANIL [Concomitant]
     Active Substance: SUFENTANIL
     Dosage: ()
  5. PROPOFOL. [Concomitant]
     Active Substance: PROPOFOL
     Dosage: ()
  6. PERFALGAN [Concomitant]
     Active Substance: ACETAMINOPHEN
     Dosage: ()
  7. KETAMINE [Concomitant]
     Active Substance: KETAMINE
     Dosage: ()
  8. DAFALGAN CODEINE [Suspect]
     Active Substance: ACETAMINOPHEN\CODEINE PHOSPHATE
     Indication: POSTOPERATIVE ANALGESIA
     Dosage: ()
     Route: 048
     Dates: start: 20170609, end: 20170612
  9. MIDAZOLAM [Concomitant]
     Active Substance: MIDAZOLAM HYDROCHLORIDE
     Dosage: ()
  10. LEVOTHYROX [Concomitant]
     Active Substance: LEVOTHYROXINE
  11. CHLORMADINONE [Concomitant]
     Active Substance: CHLORMADINONE
  12. ARNICA                             /01006901/ [Suspect]
     Active Substance: ARNICA MONTANA\HERBALS\HOMEOPATHICS
     Indication: POSTOPERATIVE ANALGESIA
     Dosage: ()
     Route: 048
     Dates: start: 20170609, end: 20170612
  13. DEXAMETHASONE. [Concomitant]
     Active Substance: DEXAMETHASONE
     Dosage: ()
  14. ECONAZOLE [Suspect]
     Active Substance: ECONAZOLE
     Indication: INTERTRIGO
     Dosage: ()
     Route: 061
     Dates: start: 201706, end: 201706
  15. CHLORHEXIDIN                       /00133001/ [Concomitant]
     Active Substance: CHLORHEXIDINE

REACTIONS (5)
  - Rash pustular [Recovered/Resolved]
  - Dermatitis bullous [Recovered/Resolved]
  - Rash maculo-papular [Recovered/Resolved]
  - Eosinophilia [Recovered/Resolved]
  - Pruritus [Recovered/Resolved]

NARRATIVE: CASE EVENT DATE: 20170617
